FAERS Safety Report 18399624 (Version 1)
Quarter: 2020Q4

REPORT INFORMATION
  Report Type: Spontaneous
  Country: FR (occurrence: FR)
  Receive Date: 20201019
  Receipt Date: 20201019
  Transmission Date: 20210114
  Serious: Yes (Other)
  Sender: FDA-Public Use
  Company Number: FR-MYLANLABS-2020M1087189

PATIENT
  Age: 73 Year
  Sex: Male

DRUGS (23)
  1. TRIFLUCAN [Concomitant]
     Active Substance: FLUCONAZOLE
     Dosage: 100 MILLIGRAM, QD
     Route: 048
  2. PREGABALINE [Suspect]
     Active Substance: PREGABALIN
     Indication: DEPRESSION
     Dosage: 300 MILLIGRAM, QD
     Route: 048
     Dates: start: 20200305, end: 20200430
  3. SERESTA [Concomitant]
     Active Substance: OXAZEPAM
     Indication: ANXIETY
     Dosage: 10 MILLIGRAM, PRN
     Route: 048
     Dates: start: 20200114
  4. DAFALGAN CODEINE [Concomitant]
     Active Substance: ACETAMINOPHEN\CODEINE PHOSPHATE
     Indication: PAIN
     Dosage: 4 DOSAGE FORM, QD
     Route: 048
  5. SERTRALINE ARROW [Suspect]
     Active Substance: SERTRALINE HYDROCHLORIDE
     Indication: DEPRESSION
     Dosage: 50 MILLIGRAM, QD
     Route: 048
     Dates: start: 20200305, end: 20200430
  6. COLCHICINE. [Concomitant]
     Active Substance: COLCHICINE
     Indication: GOUT
     Dosage: 1 MILLIGRAM, QD
     Route: 048
  7. CONTRAMAL [Concomitant]
     Active Substance: TRAMADOL HYDROCHLORIDE
     Indication: PAIN
     Dosage: 50 MILLIGRAM, PRN
     Route: 048
     Dates: start: 20200114
  8. LOVENOX [Concomitant]
     Active Substance: ENOXAPARIN SODIUM
     Indication: ISCHAEMIC HEART DISEASE PROPHYLAXIS
     Dosage: 2 DOSAGE FORM, QD
     Route: 058
  9. MIDAZOLAM MYLAN [Concomitant]
     Active Substance: MIDAZOLAM HYDROCHLORIDE
     Indication: AGITATION
     Dosage: 2 MILLIGRAM, PRN
     Route: 058
     Dates: start: 20200114
  10. SIMVASTATINE ARROW [Concomitant]
     Active Substance: SIMVASTATIN
     Indication: ISCHAEMIC CARDIOMYOPATHY
     Dosage: 40 MILLIGRAM, QD
  11. SOLUPRED                           /00016217/ [Concomitant]
     Active Substance: PREDNISOLONE SODIUM METAZOATE
     Dosage: 60 MILLIGRAM, QD
     Route: 048
  12. AMLODIPINE [Concomitant]
     Active Substance: AMLODIPINE BESYLATE
     Indication: HYPERTENSION
     Dosage: 5 MILLIGRAM, QD
     Route: 058
  13. LAROXYL [Concomitant]
     Active Substance: AMITRIPTYLINE HYDROCHLORIDE
     Indication: DEPRESSION
     Dosage: 25 MILLIGRAM, QD
     Route: 048
  14. BISOCE [Concomitant]
     Active Substance: BISOPROLOL
     Indication: HYPERTENSION
     Dosage: 2.5 MILLIGRAM, QD
  15. ZYLORIC [Concomitant]
     Active Substance: ALLOPURINOL
     Indication: GOUT
     Dosage: 200 MILLIGRAM, QD
     Route: 048
  16. SMECTA [Concomitant]
     Active Substance: MONTMORILLONITE
     Indication: DIARRHOEA
     Dosage: 3 GRAM, PRN
     Route: 048
     Dates: start: 20200114
  17. LASILIX FAIBLE [Concomitant]
     Active Substance: FUROSEMIDE
     Indication: HYPERTENSION
     Dosage: 20 MILLIGRAM, QD
  18. MONOPROST [Concomitant]
     Active Substance: LATANOPROST
     Dosage: 1 DOSAGE FORM, QD
     Route: 047
  19. RAMIPRIL MYLAN [Concomitant]
     Active Substance: RAMIPRIL
     Indication: HYPERTENSION
     Dosage: 10 MILLIGRAM, QD
  20. LANSOPRAZOLE MYLAN 15 MG, COMPRIM? ORODISPERSIBLE [Suspect]
     Active Substance: LANSOPRAZOLE
     Indication: PROPHYLAXIS AGAINST GASTROINTESTINAL ULCER
     Dosage: 15 MILLIGRAM, QD
     Route: 048
     Dates: start: 20200227, end: 20200430
  21. COUMADINE [Concomitant]
     Active Substance: WARFARIN SODIUM
     Indication: ISCHAEMIC CARDIOMYOPATHY
     Dosage: 1 DOSAGE FORM, QD
     Route: 048
     Dates: start: 20200114
  22. CALCIDOSE VITAMINE D [Concomitant]
     Active Substance: CALCIUM\CHOLECALCIFEROL
     Indication: OSTEOPOROSIS PROPHYLAXIS
     Dosage: 1 DOSAGE FORM, QD
     Route: 048
  23. JOSIR [Concomitant]
     Active Substance: TAMSULOSIN
     Indication: BENIGN PROSTATIC HYPERPLASIA
     Dosage: 0.4 MILLIGRAM, QD
     Route: 048

REACTIONS (1)
  - Hypokalaemia [Recovered/Resolved]

NARRATIVE: CASE EVENT DATE: 20200428
